FAERS Safety Report 8902182 (Version 3)
Quarter: 2013Q1

REPORT INFORMATION
  Report Type: Spontaneous
  Country: CA (occurrence: CA)
  Receive Date: 20121112
  Receipt Date: 20130326
  Transmission Date: 20140127
  Serious: Yes (Hospitalization)
  Sender: FDA-Public Use
  Company Number: CA-INCYTE CORPORATION-2012IN002245

PATIENT
  Sex: Female

DRUGS (4)
  1. JAKAVI [Suspect]
     Indication: MYELOFIBROSIS
     Dosage: 20 MG, BID
     Route: 048
     Dates: start: 20120822
  2. JAKAVI [Suspect]
     Dosage: 25 MG, BID
     Route: 048
  3. JAKAVI [Suspect]
     Dosage: 20 MG, BID
     Dates: start: 20130207
  4. INSULIN [Concomitant]

REACTIONS (5)
  - Bacterial test positive [Unknown]
  - Loss of consciousness [Unknown]
  - Oedema peripheral [Unknown]
  - Weight increased [Unknown]
  - Anaemia [Unknown]
